FAERS Safety Report 5456944-5 (Version None)
Quarter: 2007Q3

REPORT INFORMATION
  Report Type: 
  Country: None (occurrence: None)
  Receive Date: 20070918
  Receipt Date: 20061211
  Transmission Date: 20080115
  Serious: No
  Sender: FDA-Public Use
  Company Number: US-ASTRAZENECA-2006UW27397

PATIENT
  Age: 57 Year
  Sex: Female
  Weight: 49.9 kg

DRUGS (5)
  1. SEROQUEL [Suspect]
     Indication: DEPRESSION
     Route: 048
     Dates: start: 20060501, end: 20060801
  2. SEROQUEL [Suspect]
     Indication: BIPOLAR DISORDER
     Route: 048
     Dates: start: 20060501, end: 20060801
  3. TRAZODONE HCL [Concomitant]
     Indication: SLEEP DISORDER
  4. TRAZODONE HCL [Concomitant]
  5. WELLBUTRIN [Concomitant]

REACTIONS (2)
  - APHTHOUS STOMATITIS [None]
  - ORAL DISCOMFORT [None]
